FAERS Safety Report 16216597 (Version 5)
Quarter: 2021Q1

REPORT INFORMATION
  Report Type: Spontaneous
  Country: US (occurrence: US)
  Receive Date: 20190419
  Receipt Date: 20210323
  Transmission Date: 20210419
  Serious: Yes (Other)
  Sender: FDA-Public Use
  Company Number: US-PFIZER INC-2019166282

PATIENT
  Age: 85 Year
  Sex: Female
  Weight: 63.5 kg

DRUGS (13)
  1. METOPROLOL [METOPROLOL FUMARATE] [Concomitant]
     Dosage: UNK, 2X/DAY
  2. SIMVASTATIN. [Concomitant]
     Active Substance: SIMVASTATIN
     Dosage: UNK
  3. ALPRAZOLAM. [Concomitant]
     Active Substance: ALPRAZOLAM
     Dosage: 35 MG, UNK
  4. PRISTIQ EXTENDED?RELEASE [Suspect]
     Active Substance: DESVENLAFAXINE SUCCINATE
     Indication: DEPRESSION
  5. SPIRONOLACTONE. [Concomitant]
     Active Substance: SPIRONOLACTONE
     Dosage: UNK
     Dates: start: 201905
  6. INSULIN [Concomitant]
     Active Substance: INSULIN NOS
     Dosage: 6 IU, 3X/DAY (6 UNITS 3 TIMES A DAY AND 15 AT NIGHT)
  7. PRISTIQ EXTENDED?RELEASE [Suspect]
     Active Substance: DESVENLAFAXINE SUCCINATE
     Indication: STRESS
     Dosage: 50 MG, 1X/DAY (IN THE MORNING)
     Route: 048
  8. ENTRESTO [Concomitant]
     Active Substance: SACUBITRIL\VALSARTAN
     Indication: CARDIAC DISORDER
     Dosage: UNK, 2X/DAY
     Dates: start: 201807
  9. INSULIN [Concomitant]
     Active Substance: INSULIN NOS
     Dosage: 13 UNITS AT BED TIME
  10. PRISTIQ EXTENDED?RELEASE [Suspect]
     Active Substance: DESVENLAFAXINE SUCCINATE
     Indication: ANXIETY
  11. JANUVIA [Concomitant]
     Active Substance: SITAGLIPTIN PHOSPHATE
     Indication: DIABETES MELLITUS
     Dosage: 1000 MG, 1X/DAY
  12. METFORMIN [METFORMIN HYDROCHLORIDE] [Concomitant]
     Active Substance: METFORMIN HYDROCHLORIDE
     Indication: DIABETES MELLITUS
     Dosage: 1000 MG, 2X/DAY
  13. ZETA [FUSIDATE SODIUM] [Concomitant]
     Dosage: 10 MG, 1X/DAY

REACTIONS (2)
  - Neuropathy peripheral [Unknown]
  - Cardiac disorder [Unknown]

NARRATIVE: CASE EVENT DATE: 2019
